FAERS Safety Report 4616452-8 (Version None)
Quarter: 2005Q1

REPORT INFORMATION
  Report Type: 
  Country: None (occurrence: None)
  Receive Date: 20050318
  Receipt Date: 20050311
  Transmission Date: 20050727
  Serious: Yes (Hospitalization, Other)
  Sender: FDA-Public Use
  Company Number: KII-2005-0015495

PATIENT
  Age: 54 Year
  Sex: Female

DRUGS (10)
  1. HYDROMORPHONE HCL [Suspect]
     Indication: DRUG USE FOR UNKNOWN INDICATION
     Dosage: ORAL
     Route: 048
  2. CALCIUM CHANNEL BLOCKERS [Suspect]
     Indication: DRUG USE FOR UNKNOWN INDICATION
     Dosage: ORAL
     Route: 048
  3. PROPOXYPHENE HCL AND ACETAMINOPHEN [Suspect]
     Indication: DRUG USE FOR UNKNOWN INDICATION
     Dosage: ORAL
     Route: 048
  4. PENTAZOCINE/NALOXONE [Suspect]
     Indication: DRUG USE FOR UNKNOWN INDICATION
     Dosage: ORAL
     Route: 048
  5. BENZODIAZEPINE DERIVATIVES [Suspect]
     Indication: DRUG USE FOR UNKNOWN INDICATION
     Dosage: ORAL
     Route: 048
  6. ANTIHISTAMINES FOR SYSTEMIC USE [Suspect]
     Indication: DRUG USE FOR UNKNOWN INDICATION
     Dosage: ORAL
     Route: 048
  7. DIURETICS [Suspect]
     Indication: DRUG USE FOR UNKNOWN INDICATION
     Dosage: ORAL
     Route: 048
  8. CIMETIDINE AND OTHER HISTAMINE-2 ANTAGONISTS [Suspect]
     Indication: DRUG USE FOR UNKNOWN INDICATION
     Dosage: ORAL
     Route: 048
  9. THYROID HORMONES [Suspect]
     Indication: DRUG USE FOR UNKNOWN INDICATION
     Dosage: ORAL
     Route: 048
  10. FLUDROCORTISONE (FLUDROCORTISONE) [Suspect]
     Indication: DRUG USE FOR UNKNOWN INDICATION
     Dosage: ORAL
     Route: 048

REACTIONS (6)
  - ATRIOVENTRICULAR BLOCK FIRST DEGREE [None]
  - BOWEL SOUNDS ABNORMAL [None]
  - COMA [None]
  - HEART RATE DECREASED [None]
  - LOSS OF CONSCIOUSNESS [None]
  - MULTIPLE DRUG OVERDOSE [None]
